FAERS Safety Report 12038281 (Version 1)
Quarter: 2016Q1

REPORT INFORMATION
  Report Type: Spontaneous
  Country: IT (occurrence: IT)
  Receive Date: 20160208
  Receipt Date: 20160208
  Transmission Date: 20160526
  Serious: Yes (Other)
  Sender: FDA-Public Use
  Company Number: IT-ACTAVIS-2016-02542

PATIENT
  Age: 7 Year
  Sex: Male

DRUGS (2)
  1. RANITIDINE (UNKNOWN) [Suspect]
     Active Substance: RANITIDINE HYDROCHLORIDE
     Indication: STRESS ULCER
     Dosage: UNK
     Route: 042
  2. AMPICILLIN [Concomitant]
     Active Substance: AMPICILLIN
     Indication: STRESS ULCER
     Dosage: UNK
     Route: 042

REACTIONS (1)
  - Anaphylactic reaction [Recovering/Resolving]
